FAERS Safety Report 5949940-2 (Version None)
Quarter: 2008Q4

REPORT INFORMATION
  Report Type: 
  Country: None (occurrence: None)
  Receive Date: 20081112
  Receipt Date: 20081030
  Transmission Date: 20090506
  Serious: Yes (Other)
  Sender: FDA-Public Use
  Company Number: TR-ELI_LILLY_AND_COMPANY-TR200802003098

PATIENT
  Sex: Male
  Weight: 117 kg

DRUGS (2)
  1. ZYPREXA [Suspect]
     Dosage: 10 MG, UNK
     Route: 048
     Dates: end: 20080101
  2. ZYPREXA [Suspect]
     Dosage: 10 MG, UNK
     Route: 048
     Dates: start: 20080201, end: 20080401

REACTIONS (3)
  - BLOOD CHOLESTEROL INCREASED [None]
  - HEPATOMEGALY [None]
  - WEIGHT INCREASED [None]
